FAERS Safety Report 23695887 (Version 1)
Quarter: 2024Q2

REPORT INFORMATION
  Report Type: Report from Study
  Country: US (occurrence: US)
  Receive Date: 20240402
  Receipt Date: 20240402
  Transmission Date: 20240716
  Serious: Yes (Other)
  Sender: FDA-Public Use
  Company Number: US-BEIGENE-BGN-2024-004721

PATIENT

DRUGS (1)
  1. BRUKINSA [Suspect]
     Active Substance: ZANUBRUTINIB
     Indication: Chronic lymphocytic leukaemia
     Dosage: 80 MILLIGRAM, BID
     Route: 048
     Dates: start: 20230405

REACTIONS (3)
  - Dementia [Recovering/Resolving]
  - Anxiety [Recovering/Resolving]
  - Urinary tract infection [Recovering/Resolving]
